FAERS Safety Report 8210944-0 (Version None)
Quarter: 2012Q1

REPORT INFORMATION
  Report Type: 
  Country: None (occurrence: None)
  Receive Date: 20120315
  Receipt Date: 20120308
  Transmission Date: 20120608
  Serious: Yes (Hospitalization)
  Sender: FDA-Public Use
  Company Number: US-BAYER-2012-023968

PATIENT
  Age: 46 Year
  Sex: Female
  Weight: 77.551 kg

DRUGS (6)
  1. YAZ [Suspect]
     Dosage: UNK
     Dates: end: 20120101
  2. DICLOFENAC POTASSIUM [Concomitant]
     Dosage: 50 MG, PRN
     Route: 048
  3. BEYAZ [Suspect]
     Dosage: UNK
     Dates: start: 20110101
  4. ZYRTEC [Concomitant]
     Dosage: 10 MG, UNK
     Route: 048
  5. ACETAMINOPHEN AND HYDROCODONE BITARTRATE [Concomitant]
     Dosage: UNK UNK, PRN
  6. NAPROXEN [Concomitant]
     Indication: DYSMENORRHOEA
     Dosage: 550 MG, BID
     Route: 048

REACTIONS (1)
  - PULMONARY EMBOLISM [None]
